FAERS Safety Report 6935994-3 (Version None)
Quarter: 2010Q3

REPORT INFORMATION
  Report Type: 
  Country: None (occurrence: None)
  Receive Date: 20100823
  Receipt Date: 20100812
  Transmission Date: 20110219
  Serious: Yes (Other)
  Sender: FDA-Public Use
  Company Number: US-BAYER-200921332NA

PATIENT
  Age: 52 Year
  Sex: Female
  Weight: 48 kg

DRUGS (22)
  1. MAGNEVIST [Suspect]
     Indication: VENOGRAM
     Dosage: AS USED: 15 ML
     Dates: start: 20051215, end: 20051215
  2. MAGNEVIST [Suspect]
     Dates: start: 20041118, end: 20041118
  3. OMNISCAN [Suspect]
     Indication: NUCLEAR MAGNETIC RESONANCE IMAGING
  4. OPTIMARK [Suspect]
     Indication: NUCLEAR MAGNETIC RESONANCE IMAGING
  5. MULTIHANCE [Suspect]
     Indication: NUCLEAR MAGNETIC RESONANCE IMAGING
  6. PROHANCE [Suspect]
     Indication: NUCLEAR MAGNETIC RESONANCE IMAGING
  7. CALCITRIOL [Concomitant]
  8. EPOGEN [Concomitant]
     Dosage: WITH DIALYSIS
     Dates: start: 20041201
  9. PROGRAF [Concomitant]
     Dates: start: 20041124
  10. CELL CEPT [Concomitant]
     Dosage: TOTAL DAILY DOSE: 1500 DF
     Dates: start: 20041124
  11. RENAGEL [Concomitant]
     Route: 048
     Dates: start: 20050623
  12. PREDNISONE [Concomitant]
     Dates: start: 20041130, end: 20041130
  13. PREDNISONE [Concomitant]
     Dates: start: 20041201, end: 20041201
  14. CORTEF [Concomitant]
     Dosage: TOTAL DAILY DOSE: 22.5 MG
     Dates: start: 20041124
  15. MIDODRINE HYDROCHLORIDE [Concomitant]
     Route: 048
     Dates: start: 20041124, end: 20070420
  16. SENSIPAR [Concomitant]
  17. COUMADIN [Concomitant]
     Dosage: TOTAL DAILY DOSE: 4 MG
     Dates: start: 20060321
  18. TRIAMCINOLONE [Concomitant]
     Dates: start: 20051103
  19. HYDROCORTISONE [Concomitant]
     Route: 048
     Dates: start: 20060322, end: 20070412
  20. HYDROCORTISONE [Concomitant]
     Route: 048
     Dates: start: 20060530, end: 20080623
  21. FLORINEF [Concomitant]
     Route: 048
     Dates: start: 20050623, end: 20070420
  22. THEOPHYLLINE [Concomitant]

REACTIONS (30)
  - ABASIA [None]
  - ANHEDONIA [None]
  - ARTHRALGIA [None]
  - DEFORMITY [None]
  - EMOTIONAL DISTRESS [None]
  - ERYTHEMA [None]
  - EXTREMITY CONTRACTURE [None]
  - GENERAL PHYSICAL HEALTH DETERIORATION [None]
  - HYPOAESTHESIA [None]
  - JOINT RANGE OF MOTION DECREASED [None]
  - JOINT STIFFNESS [None]
  - MOBILITY DECREASED [None]
  - MUSCULAR WEAKNESS [None]
  - MUSCULOSKELETAL STIFFNESS [None]
  - NEPHROGENIC SYSTEMIC FIBROSIS [None]
  - OCULAR ICTERUS [None]
  - OEDEMA PERIPHERAL [None]
  - PAIN [None]
  - PAIN IN EXTREMITY [None]
  - RASH PAPULAR [None]
  - SCAR [None]
  - SKIN ATROPHY [None]
  - SKIN DISCOLOURATION [None]
  - SKIN EXFOLIATION [None]
  - SKIN FIBROSIS [None]
  - SKIN HYPERPIGMENTATION [None]
  - SKIN HYPERTROPHY [None]
  - SKIN INDURATION [None]
  - SKIN PLAQUE [None]
  - SKIN TIGHTNESS [None]
